FAERS Safety Report 20485187 (Version 1)
Quarter: 2022Q1

REPORT INFORMATION
  Report Type: Other
  Country: FR (occurrence: None)
  Receive Date: 20220217
  Receipt Date: 20220217
  Transmission Date: 20220423
  Serious: Yes (Death)
  Sender: FDA-Public Use
  Company Number: FR-STADA-242278

PATIENT
  Age: 46 Year
  Sex: Male

DRUGS (2)
  1. BEVACIZUMAB [Suspect]
     Active Substance: BEVACIZUMAB
     Indication: Brain neoplasm
     Route: 065
     Dates: start: 202004
  2. BEVACIZUMAB [Suspect]
     Active Substance: BEVACIZUMAB
     Indication: Melanocytic naevus

REACTIONS (3)
  - Tumour haemorrhage [Fatal]
  - Intraventricular haemorrhage [Fatal]
  - Off label use [Fatal]

NARRATIVE: CASE EVENT DATE: 20201120
